FAERS Safety Report 13728090 (Version 1)
Quarter: 2017Q3

REPORT INFORMATION
  Report Type: Spontaneous
  Country: US (occurrence: US)
  Receive Date: 20170707
  Receipt Date: 20170707
  Transmission Date: 20171127
  Serious: No
  Sender: FDA-Public Use
  Company Number: US-PFIZER INC-2017294126

PATIENT
  Age: 58 Year
  Sex: Male

DRUGS (4)
  1. RANEXA [Concomitant]
     Active Substance: RANOLAZINE
  2. LYRICA [Suspect]
     Active Substance: PREGABALIN
     Indication: CERVICAL RADICULOPATHY
     Dosage: 150 MG, 2X/DAY (TAKE 1 CAPSULE BY MOUTH 2 TIMES DAILY)
     Route: 048
     Dates: start: 20170629
  3. LYRICA [Suspect]
     Active Substance: PREGABALIN
     Indication: ARTHROPATHY
  4. LYRICA [Suspect]
     Active Substance: PREGABALIN
     Indication: BACK PAIN

REACTIONS (1)
  - Drug effect increased [Unknown]
